FAERS Safety Report 19264140 (Version 1)
Quarter: 2021Q2

REPORT INFORMATION
  Report Type: Spontaneous
  Country: FR (occurrence: FR)
  Receive Date: 20210517
  Receipt Date: 20210517
  Transmission Date: 20210717
  Serious: Yes (Hospitalization)
  Sender: FDA-Public Use
  Company Number: FR-ACCORD-225289

PATIENT
  Age: 45 Year
  Sex: Male

DRUGS (1)
  1. OXALIPLATINE ACCORD [Suspect]
     Active Substance: OXALIPLATIN
     Indication: ADENOCARCINOMA OF COLON
     Route: 042
     Dates: start: 20210217

REACTIONS (3)
  - Condition aggravated [Not Recovered/Not Resolved]
  - Rash erythematous [Unknown]
  - Rash pruritic [Unknown]

NARRATIVE: CASE EVENT DATE: 20210217
